FAERS Safety Report 14051863 (Version 1)
Quarter: 2017Q4

REPORT INFORMATION
  Report Type: Spontaneous
  Country: US (occurrence: US)
  Receive Date: 20171005
  Receipt Date: 20171005
  Transmission Date: 20180321
  Serious: Yes (Other)
  Sender: FDA-Public Use
  Company Number: US-AMGEN-USASP2017148254

PATIENT
  Age: 86 Year
  Sex: Female
  Weight: 54.88 kg

DRUGS (3)
  1. PROCRIT [Suspect]
     Active Substance: ERYTHROPOIETIN
     Indication: ANAEMIA
     Dosage: 20000 UNIT, AS NECESSARY
     Route: 058
  2. ARANESP [Suspect]
     Active Substance: DARBEPOETIN ALFA
     Indication: ANAEMIA
     Dosage: UNK (ONCE)
     Route: 065
     Dates: start: 201709, end: 201709
  3. PROCRIT [Suspect]
     Active Substance: ERYTHROPOIETIN
     Dosage: 40000 UNIT, Q2WK (EVERY OTHER WEEK)
     Route: 058

REACTIONS (5)
  - Hypotension [Not Recovered/Not Resolved]
  - Nausea [Unknown]
  - Haemoglobin abnormal [Not Recovered/Not Resolved]
  - Headache [Unknown]
  - Unevaluable event [Not Recovered/Not Resolved]

NARRATIVE: CASE EVENT DATE: 201709
